FAERS Safety Report 8310644 (Version 2)
Quarter: 2012Q4

REPORT INFORMATION
  Report Type: 
  Country: US (occurrence: US)
  Receive Date: 20111223
  Receipt Date: 20121228
  Transmission Date: 20130627
  Serious: Yes (Other)
  Sender: FDA-Public Use
  Company Number: US-ASTRAZENECA-2011SE75835

PATIENT
  Age: 47 Year
  Sex: Female

DRUGS (1)
  1. CRESTOR [Suspect]
     Route: 048

REACTIONS (6)
  - Road traffic accident [Unknown]
  - Head injury [Unknown]
  - Cerebrovascular accident [Unknown]
  - Renal disorder [Unknown]
  - Chest pain [Unknown]
  - Dizziness [Unknown]
